FAERS Safety Report 4354029-2 (Version None)
Quarter: 2004Q2

REPORT INFORMATION
  Report Type: 
  Country: None (occurrence: None)
  Receive Date: 20040503
  Receipt Date: 20040420
  Transmission Date: 20050107
  Serious: Yes (Hospitalization)
  Sender: FDA-Public Use
  Company Number: DEU-2004-0000816

PATIENT
  Age: 47 Year
  Sex: Male

DRUGS (1)
  1. DIHYDROCODEINE BITARTRATE (DIHYDROCODEINE BITARTRATE) CR TABLET [Suspect]
     Indication: POSTOPERATIVE ANALGESIA
     Dosage: 60 MG, TID, ORAL
     Route: 048

REACTIONS (4)
  - FAECALOMA [None]
  - LARGE INTESTINE PERFORATION [None]
  - PERITONITIS [None]
  - SHOCK [None]
